FAERS Safety Report 6145894-7 (Version None)
Quarter: 2009Q2

REPORT INFORMATION
  Report Type: 
  Country: None (occurrence: None)
  Receive Date: 20090407
  Receipt Date: 20090402
  Transmission Date: 20091009
  Serious: Yes (Other)
  Sender: FDA-Public Use
  Company Number: AT-ROCHE-625327

PATIENT
  Sex: Female
  Weight: 64 kg

DRUGS (2)
  1. BONIVA [Suspect]
     Indication: DRUG USE FOR UNKNOWN INDICATION
     Dosage: DOSE REPORTED AS 3MG/3ML.
     Route: 042
     Dates: start: 20090313
  2. DAFLON [Concomitant]

REACTIONS (3)
  - ARTHRALGIA [None]
  - MYALGIA [None]
  - PULMONARY EMBOLISM [None]
